FAERS Safety Report 8715818 (Version 5)
Quarter: 2014Q4

REPORT INFORMATION
  Report Type: Spontaneous
  Country: US (occurrence: US)
  Receive Date: 20120809
  Receipt Date: 20141022
  Transmission Date: 20150529
  Serious: No
  Sender: FDA-Public Use
  Company Number: US-ASTRAZENECA-2012SE26946

PATIENT
  Age: 87 Year
  Sex: Female
  Weight: 54.4 kg

DRUGS (3)
  1. ANALAPRIL [Concomitant]
     Indication: BLOOD PRESSURE ABNORMAL
  2. CRESTOR [Suspect]
     Active Substance: ROSUVASTATIN CALCIUM
     Indication: BLOOD CHOLESTEROL ABNORMAL
     Route: 048
  3. SYNTHROID [Concomitant]
     Active Substance: LEVOTHYROXINE SODIUM

REACTIONS (8)
  - Bone disorder [Unknown]
  - Weight decreased [Unknown]
  - Blood cholesterol increased [Unknown]
  - Malaise [Unknown]
  - Dysphonia [Unknown]
  - Blood triglycerides increased [Unknown]
  - Hearing impaired [Unknown]
  - Intentional product misuse [Unknown]

NARRATIVE: CASE EVENT DATE: 201309
